FAERS Safety Report 4417533-4 (Version None)
Quarter: 2004Q3

REPORT INFORMATION
  Report Type: 
  Country: None (occurrence: None)
  Receive Date: 20040804
  Receipt Date: 20040720
  Transmission Date: 20050211
  Serious: Yes (Other)
  Sender: FDA-Public Use
  Company Number: 002129

PATIENT
  Age: 46 Year
  Sex: Female

DRUGS (4)
  1. MEDROXYPROGESTERONE ACETATE [Suspect]
     Dates: end: 19980706
  2. ESTRACE [Suspect]
     Dates: end: 19980706
  3. PROVERA [Suspect]
     Dates: end: 19980706
  4. MEDROXYPROGESTERONE ACETATE [Suspect]
     Dates: start: 19980706, end: 20010201

REACTIONS (1)
  - BREAST CANCER FEMALE [None]
